FAERS Safety Report 6790532-3 (Version None)
Quarter: 2010Q2

REPORT INFORMATION
  Report Type: 
  Country: None (occurrence: None)
  Receive Date: 20100520
  Receipt Date: 20090610
  Transmission Date: 20101027
  Serious: Yes (Other)
  Sender: FDA-Public Use
  Company Number: 2008062932

PATIENT
  Age: 63 Year
  Sex: Female
  Weight: 61 kg

DRUGS (6)
  1. PROVERA [Suspect]
     Indication: HORMONE REPLACEMENT THERAPY
     Dosage: 5 MG, 1X/DAY, ORAL
     Route: 048
     Dates: start: 19910901, end: 19960401
  2. PREMARIN [Suspect]
     Indication: HORMONE REPLACEMENT THERAPY
     Dosage: 0.625 MG, 1X/DAY, ORAL
     Route: 048
     Dates: start: 19910901, end: 19971201
  3. CYCRIN [Suspect]
     Indication: HORMONE REPLACEMENT THERAPY
     Dosage: 5 MG, 1X/DAY, ORAL
     Route: 048
     Dates: start: 19960401, end: 19971201
  4. PREMPRO [Suspect]
     Indication: HORMONE REPLACEMENT THERAPY
     Dosage: 0.625/2.5MG, ORAL
     Route: 048
     Dates: start: 19971201, end: 20000701
  5. XANAX [Concomitant]
  6. FOLIC ACID [Concomitant]

REACTIONS (1)
  - BREAST CANCER FEMALE [None]
